FAERS Safety Report 25927109 (Version 2)
Quarter: 2025Q4

REPORT INFORMATION
  Report Type: Report from Study
  Country: US (occurrence: US)
  Receive Date: 20251015
  Receipt Date: 20251019
  Transmission Date: 20260117
  Serious: Yes (Other)
  Sender: ABBVIE
  Company Number: US-ABBVIE-6498426

PATIENT
  Age: 70 Year
  Sex: Female

DRUGS (1)
  1. CREON [Suspect]
     Active Substance: PANCRELIPASE AMYLASE\PANCRELIPASE LIPASE\PANCRELIPASE PROTEASE
     Indication: Product used for unknown indication
     Route: 048
     Dates: start: 20150805

REACTIONS (3)
  - Gastric perforation [Unknown]
  - Frequent bowel movements [Unknown]
  - Product administration error [Unknown]

NARRATIVE: CASE EVENT DATE: 20251003
